FAERS Safety Report 8993298 (Version 1)
Quarter: 2013Q1

REPORT INFORMATION
  Report Type: Spontaneous
  Country: US (occurrence: US)
  Receive Date: 20130102
  Receipt Date: 20130102
  Transmission Date: 20140127
  Serious: No
  Sender: FDA-Public Use
  Company Number: US-PFIZER INC-2012331395

PATIENT
  Age: 53 Year
  Sex: Male
  Weight: 75.74 kg

DRUGS (2)
  1. ADVIL LIQUIGEL [Suspect]
     Indication: MUSCULOSKELETAL PAIN
     Dosage: UNK
     Dates: start: 201212, end: 20121227
  2. ADVIL LIQUIGEL [Suspect]
     Indication: PAIN IN EXTREMITY

REACTIONS (1)
  - Chromaturia [Unknown]
